FAERS Safety Report 17820365 (Version 2)
Quarter: 2020Q4

REPORT INFORMATION
  Report Type: Spontaneous
  Country: US (occurrence: US)
  Receive Date: 20200525
  Receipt Date: 20201202
  Transmission Date: 20210113
  Serious: Yes (Death, Hospitalization, Other)
  Sender: FDA-Public Use
  Company Number: US-AMGEN-USASP2020081119

PATIENT
  Age: 55 Year
  Sex: Female

DRUGS (5)
  1. XGEVA [Suspect]
     Active Substance: DENOSUMAB
     Indication: BREAST CANCER METASTATIC
     Dosage: 120 MILLIGRAM, QMO, 10 DOSES
     Route: 065
  2. PALBOCICLIB [Concomitant]
     Active Substance: PALBOCICLIB
  3. ABRAXANE [Concomitant]
     Active Substance: PACLITAXEL
  4. ZOLEDRONATE [Concomitant]
     Active Substance: ZOLEDRONIC ACID
  5. NIVOLUMAB [Concomitant]
     Active Substance: NIVOLUMAB

REACTIONS (9)
  - Blood 1,25-dihydroxycholecalciferol increased [Unknown]
  - Blood parathyroid hormone increased [Unknown]
  - Breast cancer metastatic [Unknown]
  - Cachexia [Unknown]
  - Blood alkaline phosphatase increased [Unknown]
  - Death [Fatal]
  - Osteomalacia [Unknown]
  - Blood 25-hydroxycholecalciferol decreased [Unknown]
  - Jaundice cholestatic [Unknown]
